FAERS Safety Report 5334662-1 (Version None)
Quarter: 2007Q2

REPORT INFORMATION
  Report Type: 
  Country: None (occurrence: None)
  Receive Date: 20070525
  Receipt Date: 20070514
  Transmission Date: 20071010
  Serious: Yes (Hospitalization, Disabling)
  Sender: FDA-Public Use
  Company Number: B0472112A

PATIENT
  Age: 74 Year
  Sex: Male

DRUGS (4)
  1. SERETIDE [Suspect]
     Indication: RHINITIS
     Dosage: 250MCG TWICE PER DAY
     Route: 055
  2. LAUROMACROGOL 400 [Suspect]
     Indication: VEIN DISORDER
     Route: 042
     Dates: start: 20060403, end: 20060403
  3. SINGULAIR [Suspect]
     Indication: RHINITIS
     Dosage: 1UNIT PER DAY
     Route: 048
     Dates: start: 20051116
  4. XYZAL [Suspect]
     Indication: RHINITIS
     Route: 048

REACTIONS (15)
  - ALLERGIC GRANULOMATOUS ANGIITIS [None]
  - BLOOD ALKALINE PHOSPHATASE INCREASED [None]
  - CUTANEOUS VASCULITIS [None]
  - DYSAESTHESIA [None]
  - GAIT DISTURBANCE [None]
  - INFLAMMATION [None]
  - LEUKOCYTOSIS [None]
  - PAIN [None]
  - PARAESTHESIA [None]
  - PERIPHERAL SENSORY NEUROPATHY [None]
  - POLYNEUROPATHY [None]
  - PURPURA [None]
  - PYREXIA [None]
  - TRANSAMINASES INCREASED [None]
  - VASCULITIS NECROTISING [None]
